FAERS Safety Report 5115778-1 (Version None)
Quarter: 2006Q3

REPORT INFORMATION
  Report Type: 
  Country: None (occurrence: None)
  Receive Date: 20060927
  Receipt Date: 20060921
  Transmission Date: 20061208
  Serious: Yes (Other)
  Sender: FDA-Public Use
  Company Number: MX-ROCHE-464184

PATIENT
  Age: 28 Year
  Sex: Female
  Weight: 51 kg

DRUGS (1)
  1. ROACCUTAN [Suspect]
     Indication: ACNE
     Route: 048
     Dates: start: 20060801, end: 20060902

REACTIONS (1)
  - PREGNANCY [None]
